FAERS Safety Report 4594534-7 (Version None)
Quarter: 2005Q1

REPORT INFORMATION
  Report Type: 
  Country: None (occurrence: None)
  Receive Date: 20050301
  Receipt Date: 20040430
  Transmission Date: 20050727
  Serious: No
  Sender: FDA-Public Use
  Company Number: US-GLAXOSMITHKLINE-A0509190A

PATIENT
  Age: 70 Year
  Sex: Female
  Weight: 82.7 kg

DRUGS (5)
  1. VALTREX [Suspect]
     Indication: HERPES ZOSTER
     Dosage: 1G THREE TIMES PER DAY
     Route: 048
     Dates: start: 20040420, end: 20040422
  2. XIMOVAN [Concomitant]
     Dosage: 80MG PER DAY
     Route: 048
  3. ALLEGRA [Concomitant]
     Dosage: 180MG PER DAY
     Route: 048
  4. CRESTOR [Concomitant]
     Dosage: 10MG PER DAY
     Route: 048
  5. CARDIZEM [Concomitant]
     Dosage: 18G TWICE PER DAY
     Route: 048

REACTIONS (2)
  - PALPITATIONS [None]
  - TACHYCARDIA [None]
